FAERS Safety Report 11579383 (Version 3)
Quarter: 2016Q1

REPORT INFORMATION
  Report Type: Spontaneous
  Country: US (occurrence: US)
  Receive Date: 20150930
  Receipt Date: 20160118
  Transmission Date: 20160525
  Serious: No
  Sender: FDA-Public Use
  Company Number: US-PFIZER INC-2015314690

PATIENT
  Age: 62 Year
  Sex: Female
  Weight: 79 kg

DRUGS (10)
  1. VITAMIN B6 [Concomitant]
     Active Substance: PYRIDOXINE HYDROCHLORIDE
     Indication: NERVE INJURY
     Dosage: 100 MG, 1X/DAY
  2. NEURONTIN [Suspect]
     Active Substance: GABAPENTIN
     Indication: NERVE INJURY
     Dosage: 800 MG, UNK (800 MG TABLET EVERY 2 HOURS)
     Route: 048
     Dates: start: 2000
  3. FIBER [Concomitant]
     Active Substance: PSYLLIUM HUSK
     Dosage: UNK, DAILY (EVERY DAY TO KEEP HER REGULAR)
     Dates: start: 2000
  4. VENLAFAXINE [Concomitant]
     Active Substance: VENLAFAXINE HYDROCHLORIDE
     Indication: DEPRESSION
     Dosage: 75 MG, 1X/DAY
     Dates: start: 2013
  5. TRICOR [Concomitant]
     Active Substance: FENOFIBRATE
     Indication: BLOOD CHOLESTEROL ABNORMAL
     Dosage: 72.5 MG, ALTERNATE DAY (145MG, HALF TABLET EVERY OTHER DAY)
  6. CALCIUM [Concomitant]
     Active Substance: CALCIUM
     Dosage: 1000 MG, 1X/DAY
     Dates: start: 2010
  7. MAGNESIUM [Concomitant]
     Active Substance: MAGNESIUM
     Dosage: UNK, 1X/DAY
     Dates: start: 2010
  8. NEURONTIN [Suspect]
     Active Substance: GABAPENTIN
     Indication: NEURALGIA
  9. VITAMIN D [Concomitant]
     Active Substance: CHOLECALCIFEROL
     Indication: HYPOVITAMINOSIS
     Dosage: UNK
     Dates: start: 2010
  10. GLUCOSAMINE + CHONDROITIN [Concomitant]
     Indication: ARTHRITIS
     Dosage: GLUCOSAMINE 1.5 G AND CHONDROITIN 1.2 G TWO A DAY

REACTIONS (3)
  - Depression [Recovered/Resolved]
  - Liver function test abnormal [Unknown]
  - Intentional overdose [Unknown]

NARRATIVE: CASE EVENT DATE: 2000
